FAERS Safety Report 20796860 (Version 1)
Quarter: 2022Q2

REPORT INFORMATION
  Report Type: Report from Study
  Country: FR (occurrence: FR)
  Receive Date: 20220506
  Receipt Date: 20220506
  Transmission Date: 20220721
  Serious: Yes (Death, Hospitalization)
  Sender: FDA-Public Use
  Company Number: FR-GLAXOSMITHKLINE-FR2020EME238559

PATIENT
  Age: 82 Year
  Sex: Female
  Weight: 60 kg

DRUGS (2)
  1. BELANTAMAB MAFODOTIN [Suspect]
     Active Substance: BELANTAMAB MAFODOTIN
     Indication: Plasma cell myeloma
     Dosage: 2.5 MG/KG, CYC
     Route: 042
     Dates: start: 20200526, end: 20200625
  2. CEFIXIME [Concomitant]
     Active Substance: CEFIXIME
     Indication: Urinary tract infection

REACTIONS (2)
  - Fall [Fatal]
  - Osteolysis [Fatal]

NARRATIVE: CASE EVENT DATE: 20200702
